FAERS Safety Report 25531577 (Version 1)
Quarter: 2025Q3

REPORT INFORMATION
  Report Type: Spontaneous
  Country: EU (occurrence: EU)
  Receive Date: 20250709
  Receipt Date: 20250709
  Transmission Date: 20251020
  Serious: Yes (Other)
  Sender: AMGEN
  Company Number: EU-AMGEN-ITASP2025132278

PATIENT
  Age: 76 Year
  Sex: Male

DRUGS (1)
  1. LUMAKRAS [Suspect]
     Active Substance: SOTORASIB
     Indication: Product used for unknown indication
     Route: 065
     Dates: start: 20210621

REACTIONS (1)
  - Lung adenocarcinoma [Unknown]

NARRATIVE: CASE EVENT DATE: 20230104
